FAERS Safety Report 20225915 (Version 3)
Quarter: 2022Q1

REPORT INFORMATION
  Report Type: Spontaneous
  Country: JP (occurrence: JP)
  Receive Date: 20211224
  Receipt Date: 20220127
  Transmission Date: 20220423
  Serious: Yes (Other)
  Sender: FDA-Public Use
  Company Number: JP-Eisai Medical Research-EC-2021-105310

PATIENT

DRUGS (2)
  1. ZONISAMIDE [Suspect]
     Active Substance: ZONISAMIDE
     Indication: Occupational exposure to product
     Dosage: (ORAL POWDER, EXCEGRAN)
     Route: 047
  2. PHENYTOIN SODIUM [Suspect]
     Active Substance: PHENYTOIN SODIUM
     Indication: Occupational exposure to product
     Dosage: DOSE AND FREQUENCY UNKNOWN
     Route: 047

REACTIONS (2)
  - Retinal detachment [Recovering/Resolving]
  - Occupational exposure to product [Unknown]
